FAERS Safety Report 4585683-8 (Version None)
Quarter: 2005Q1

REPORT INFORMATION
  Report Type: 
  Country: None (occurrence: None)
  Receive Date: 20050217
  Receipt Date: 20050209
  Transmission Date: 20050727
  Serious: Yes (Other)
  Sender: FDA-Public Use
  Company Number: SE-MERCK-0502SWE00008

PATIENT
  Age: 50 Year
  Sex: Female

DRUGS (5)
  1. COSMEGEN [Suspect]
     Indication: CHORIOCARCINOMA
     Route: 042
     Dates: start: 19920101, end: 19930101
  2. CEBION [Suspect]
     Indication: CHORIOCARCINOMA
     Route: 065
     Dates: start: 19920101, end: 19930101
  3. CYCLOPHOSPHAMIDE [Suspect]
     Indication: CHORIOCARCINOMA
     Route: 065
     Dates: start: 19920101, end: 19930101
  4. [THERAPY UNSPECIFIED] [Suspect]
     Indication: CHORIOCARCINOMA
     Route: 065
     Dates: start: 19920101, end: 19930101
  5. ONCOVIN [Suspect]
     Indication: CHORIOCARCINOMA
     Route: 065
     Dates: start: 19920101, end: 19930101

REACTIONS (1)
  - PAIN [None]
